FAERS Safety Report 4493185-2 (Version None)
Quarter: 2004Q4

REPORT INFORMATION
  Report Type: 
  Country: None (occurrence: None)
  Receive Date: 20041104
  Receipt Date: 20041013
  Transmission Date: 20050328
  Serious: Yes (Death)
  Sender: FDA-Public Use
  Company Number: PHBS2004DK13639

PATIENT
  Sex: Female
  Weight: 90 kg

DRUGS (1)
  1. NORETHINDRONE ACETATE [Suspect]

REACTIONS (3)
  - CEREBRAL INFARCTION [None]
  - NECROSIS [None]
  - SUDDEN DEATH [None]
